FAERS Safety Report 9279422 (Version 2)
Quarter: 2013Q2

REPORT INFORMATION
  Report Type: Spontaneous
  Country: US (occurrence: US)
  Receive Date: 20130508
  Receipt Date: 20130610
  Transmission Date: 20140414
  Serious: No
  Sender: FDA-Public Use
  Company Number: US-009507513-1305USA003635

PATIENT
  Age: 38 Year
  Sex: Male
  Weight: 75.74 kg

DRUGS (1)
  1. CLARITIN-D 24 HOUR [Suspect]
     Indication: HYPERSENSITIVITY
     Dosage: UNK, UNKNOWN
     Route: 048
     Dates: start: 20130408, end: 20130409

REACTIONS (2)
  - Paraesthesia [Recovered/Resolved]
  - Palpitations [Recovered/Resolved]
